FAERS Safety Report 15620677 (Version 2)
Quarter: 2018Q4

REPORT INFORMATION
  Report Type: Spontaneous
  Country: IL (occurrence: IL)
  Receive Date: 20181115
  Receipt Date: 20181116
  Transmission Date: 20190205
  Serious: Yes (Other)
  Sender: FDA-Public Use
  Company Number: IL-TEVA-2018-IL-975464

PATIENT
  Age: 55 Year
  Sex: Male

DRUGS (3)
  1. PACLITAXEL. [Concomitant]
     Active Substance: PACLITAXEL
  2. CARBOPLATIN CONCENTRATE 10MG/ML [Suspect]
     Active Substance: CARBOPLATIN
     Dosage: DOSAGE: 550 MG
     Dates: start: 20180829
  3. CETUXIMAB. [Concomitant]
     Active Substance: CETUXIMAB

REACTIONS (3)
  - Dyspnoea [Unknown]
  - Erythema [Unknown]
  - Lip swelling [Unknown]
